FAERS Safety Report 15758903 (Version 1)
Quarter: 2018Q4

REPORT INFORMATION
  Report Type: Report from Study
  Country: None (occurrence: US)
  Receive Date: 20181225
  Receipt Date: 20181225
  Transmission Date: 20190205
  Serious: Yes (Other)
  Sender: FDA-Public Use
  Company Number: US-ABBVIE-18K-163-2600395-00

PATIENT
  Age: 69 Year
  Sex: Female

DRUGS (1)
  1. HUMIRA [Suspect]
     Active Substance: ADALIMUMAB
     Indication: UVEITIS
     Route: 058
     Dates: start: 201612

REACTIONS (5)
  - Eye swelling [Unknown]
  - Visual impairment [Unknown]
  - Eye pain [Unknown]
  - Retinal tear [Unknown]
  - Psoriasis [Unknown]

NARRATIVE: CASE EVENT DATE: 20181212
